FAERS Safety Report 8610448-7 (Version None)
Quarter: 2012Q3

REPORT INFORMATION
  Report Type: 
  Country: None (occurrence: None)
  Receive Date: 20120822
  Receipt Date: 20120815
  Transmission Date: 20120928
  Serious: Yes (Other)
  Sender: FDA-Public Use
  Company Number: US-PFIZER INC-2012184605

PATIENT
  Age: 43 Year
  Sex: Female

DRUGS (4)
  1. SINGULAIR [Suspect]
     Dosage: UNK
  2. ZYRTEC [Suspect]
     Dosage: UNK
  3. NEURONTIN [Suspect]
     Indication: BIPOLAR DISORDER
     Dosage: UNK
  4. PROVENTIL-HFA [Concomitant]
     Dosage: UNK

REACTIONS (15)
  - SKIN DISORDER [None]
  - RHINITIS PERENNIAL [None]
  - COUGH [None]
  - SWELLING [None]
  - EYE PRURITUS [None]
  - RESPIRATORY DISORDER [None]
  - UPPER-AIRWAY COUGH SYNDROME [None]
  - INSOMNIA [None]
  - WEIGHT INCREASED [None]
  - URTICARIA CHRONIC [None]
  - URTICARIA [None]
  - ANGIOEDEMA [None]
  - NASAL DISCOMFORT [None]
  - DYSPHONIA [None]
  - SCRATCH [None]
